FAERS Safety Report 7787131-3 (Version None)
Quarter: 2011Q3

REPORT INFORMATION
  Report Type: 
  Country: None (occurrence: None)
  Receive Date: 20110929
  Receipt Date: 20110923
  Transmission Date: 20111222
  Serious: Yes (Hospitalization, Other)
  Sender: FDA-Public Use
  Company Number: FI-SANOFI-AVENTIS-2011SA058449

PATIENT
  Age: 64 Year
  Sex: Female

DRUGS (6)
  1. FLEXPEN [Suspect]
     Dates: start: 20051201
  2. LEVEMIR [Suspect]
     Route: 058
     Dates: start: 20051201
  3. ALL OTHER THERAPEUTIC PRODUCTS [Concomitant]
     Indication: PRODUCT USED FOR UNKNOWN INDICATION
     Route: 065
  4. SOLOSTAR [Suspect]
     Dates: start: 20091101
  5. METFORMIN HCL [Concomitant]
     Route: 048
     Dates: start: 20000101
  6. APIDRA SOLOSTAR [Suspect]
     Route: 058
     Dates: start: 20091101

REACTIONS (2)
  - BLOOD GLUCOSE DECREASED [None]
  - WRONG DRUG ADMINISTERED [None]
